FAERS Safety Report 4933442-6 (Version None)
Quarter: 2006Q1

REPORT INFORMATION
  Report Type: 
  Country: None (occurrence: None)
  Receive Date: 20060306
  Receipt Date: 20060227
  Transmission Date: 20060701
  Serious: Yes (Hospitalization)
  Sender: FDA-Public Use
  Company Number: JP-JPN-A200600762

PATIENT
  Age: 86 Year
  Sex: Male

DRUGS (1)
  1. ACYCLOVIR SODIUM [Suspect]
     Indication: HERPES SIMPLEX
     Dosage: 1000MG PER DAY
     Route: 048

REACTIONS (2)
  - DYSARTHRIA [None]
  - MOVEMENT DISORDER [None]
